FAERS Safety Report 15305933 (Version 1)
Quarter: 2018Q3

REPORT INFORMATION
  Report Type: Spontaneous
  Country: US (occurrence: US)
  Receive Date: 20180822
  Receipt Date: 20180822
  Transmission Date: 20181010
  Serious: No
  Sender: FDA-Public Use
  Company Number: US-CELGENEUS-USA-20180804335

PATIENT
  Age: 63 Year
  Sex: Male

DRUGS (2)
  1. OTEZLA [Suspect]
     Active Substance: APREMILAST
     Indication: PSORIATIC ARTHROPATHY
     Dosage: 10MG,20MG,30MG (TWICE DAILY)
     Route: 048
     Dates: start: 20180719, end: 20180802
  2. OTEZLA [Suspect]
     Active Substance: APREMILAST
     Indication: PSORIASIS

REACTIONS (6)
  - Decreased appetite [Unknown]
  - Irritability [Unknown]
  - Insomnia [Unknown]
  - Weight decreased [Unknown]
  - Therapy non-responder [Unknown]
  - Expired product administered [Unknown]

NARRATIVE: CASE EVENT DATE: 201807
